FAERS Safety Report 12667997 (Version 5)
Quarter: 2016Q4

REPORT INFORMATION
  Report Type: Report from Study
  Country: US (occurrence: US)
  Receive Date: 20160819
  Receipt Date: 20161110
  Transmission Date: 20170207
  Serious: Yes (Hospitalization, Disabling, Other)
  Sender: FDA-Public Use
  Company Number: US-SAOL THERAPEUTICS-2016SAO00208

PATIENT
  Sex: Female

DRUGS (2)
  1. COMPOUNDED BACLOFEN [Suspect]
     Active Substance: BACLOFEN
     Indication: CENTRAL PAIN SYNDROME
     Dosage: 449.9 ?G, \DAY
     Route: 037
  2. COMPOUNDED BACLOFEN [Suspect]
     Active Substance: BACLOFEN
     Indication: SPINAL CORD INJURY
     Dosage: 449.7 ?G, \DAY

REACTIONS (18)
  - Movement disorder [Not Recovered/Not Resolved]
  - Musculoskeletal stiffness [Unknown]
  - Performance status decreased [Unknown]
  - Therapeutic response decreased [Unknown]
  - Hot flush [Unknown]
  - Muscle tightness [Unknown]
  - Complication associated with device [Unknown]
  - Muscle spasticity [Not Recovered/Not Resolved]
  - Amnesia [Unknown]
  - Hyperhidrosis [Unknown]
  - Pain [Unknown]
  - Wound infection staphylococcal [Unknown]
  - Device malfunction [Unknown]
  - Muscle rigidity [Unknown]
  - Medical device site ulcer [Unknown]
  - Urinary tract infection [Unknown]
  - Implant site scar [Unknown]
  - Device occlusion [Unknown]

NARRATIVE: CASE EVENT DATE: 2016
